FAERS Safety Report 8247150 (Version 8)
Quarter: 2012Q4

REPORT INFORMATION
  Report Type: Report from Study
  Country: SK (occurrence: SK)
  Receive Date: 20111116
  Receipt Date: 20121217
  Transmission Date: 20130627
  Serious: Yes (Life-Threatening, Hospitalization)
  Sender: FDA-Public Use
  Company Number: SK-UCBSA-045274

PATIENT
  Age: 74 Year
  Sex: Female
  Weight: 82 kg

DRUGS (36)
  1. NEUPRO [Suspect]
     Indication: PARKINSON^S DISEASE
     Route: 062
     Dates: start: 20110223, end: 20111108
  2. NEUPRO [Suspect]
     Indication: PARKINSON^S DISEASE
     Route: 062
     Dates: start: 20110215, end: 20110222
  3. NEUPRO [Suspect]
     Indication: PARKINSON^S DISEASE
     Route: 062
     Dates: start: 20110208, end: 20110214
  4. NEUPRO [Suspect]
     Indication: PARKINSON^S DISEASE
     Route: 062
     Dates: start: 20110201, end: 20110207
  5. POTASSIUM CHLORIDE [Suspect]
     Indication: HYPOKALAEMIA
     Dates: end: 201111
  6. AMOXICILLIN + CLAVULANIC ACID [Suspect]
     Indication: UPPER RESPIRATORY TRACT INFECTION
     Dates: start: 20111010, end: 20111016
  7. ANOPYRIN [Concomitant]
     Indication: THROMBOSIS PROPHYLAXIS
  8. FUROSEMID [Concomitant]
     Indication: CHRONIC ALLOGRAFT NEPHROPATHY
  9. CONCOR [Concomitant]
     Indication: MYOCARDIAL ISCHAEMIA
  10. HELICID [Concomitant]
     Indication: PROPHYLAXIS
  11. NOOTROPIL [Concomitant]
     Indication: COGNITIVE DISORDER
  12. MILURIT [Concomitant]
     Indication: HYPERURICAEMIA
  13. NEBILET [Concomitant]
     Indication: HYPERTENSION
  14. SIMVOR [Concomitant]
     Indication: HYPERCHOLESTEROLAEMIA
     Dates: end: 201110
  15. AMICLOTON [Concomitant]
     Indication: HYPERTENSION
     Dates: end: 20111016
  16. TRITACE [Concomitant]
     Indication: HYPERTENSION
  17. VINPOCETIN COVEX [Concomitant]
     Indication: ENCEPHALOPATHY
     Dates: start: 20100823, end: 20110920
  18. COSTI [Concomitant]
     Indication: PROPHYLAXIS
     Dates: start: 20100921
  19. LYRICA [Concomitant]
     Indication: NEURALGIA
     Dates: start: 20100923
  20. ALPHA D3 [Concomitant]
     Indication: OSTEOPOROSIS PROPHYLAXIS
     Dates: start: 20110120
  21. CAVINTON FORTE [Concomitant]
     Indication: ENCEPHALOPATHY
     Dates: start: 20110921, end: 20111108
  22. CAVINTON FORTE [Concomitant]
     Indication: ENCEPHALOPATHY
     Dates: start: 20111109
  23. ISICOM [Concomitant]
     Indication: PARKINSON^S DISEASE
     Dates: start: 20120516
  24. ISICOM [Concomitant]
     Indication: PARKINSON^S DISEASE
     Dates: start: 20120221, end: 20120415
  25. ISICOM [Concomitant]
     Indication: PARKINSON^S DISEASE
     Dates: start: 20110121, end: 20120220
  26. ISICOM [Concomitant]
     Indication: PARKINSON^S DISEASE
     Dates: start: 20101003, end: 20110120
  27. ISICOM [Concomitant]
     Indication: PARKINSON^S DISEASE
     Dates: start: 20100930, end: 20101002
  28. ISICOM [Concomitant]
     Indication: PARKINSON^S DISEASE
     Dates: start: 20100927, end: 20100929
  29. ISICOM [Concomitant]
     Indication: PARKINSON^S DISEASE
     Dates: start: 20100923, end: 20100926
  30. CIPROFLOXACIN [Concomitant]
     Indication: UPPER RESPIRATORY TRACT INFECTION
     Dates: start: 201110, end: 201110
  31. CIPROFLOXACIN [Concomitant]
     Indication: UPPER RESPIRATORY TRACT INFECTION
     Dosage: SOLUTION
     Dates: start: 20111016, end: 201110
  32. HUMULIN R [Concomitant]
     Indication: METABOLIC DISORDER
     Dosage: AMPOULES
     Dates: start: 201110, end: 201110
  33. CLEXANE [Concomitant]
     Indication: THROMBOSIS PROPHYLAXIS
     Dosage: AMPOULES
     Dates: start: 20111016, end: 201110
  34. CALCIUM RESONIUM [Concomitant]
     Indication: METABOLIC DISORDER
     Dosage: FORM: POWDER
     Dates: start: 20111016, end: 201110
  35. INFUSIO GLUCOSI [Concomitant]
     Indication: METABOLIC DISORDER
     Dosage: SOLUTION
     Dates: start: 20111016, end: 201110
  36. INFUSIO NATRIL CHLORATI ISOTONICA [Concomitant]
     Indication: METABOLIC DISORDER
     Dosage: SOLUTION
     Dates: start: 20111016, end: 201110

REACTIONS (2)
  - Renal failure acute [Recovered/Resolved]
  - Dehydration [Recovered/Resolved]
